FAERS Safety Report 13733521 (Version 1)
Quarter: 2017Q3

REPORT INFORMATION
  Report Type: Spontaneous
  Country: US (occurrence: US)
  Receive Date: 20170707
  Receipt Date: 20170707
  Transmission Date: 20171127
  Serious: No
  Sender: FDA-Public Use
  Company Number: US-ROCHE-1447084

PATIENT
  Age: 31 Year
  Sex: Male

DRUGS (2)
  1. GANCICLOVIR. [Suspect]
     Active Substance: GANCICLOVIR
     Indication: CYTOMEGALOVIRUS CHORIORETINITIS
     Dosage: CONTINUALLY INCREASING DOSE (5 TO 15 MG/KG PER DAY)
     Route: 042
  2. FOSCARNET [Concomitant]
     Active Substance: FOSCARNET
     Route: 065

REACTIONS (1)
  - Drug resistance [Unknown]
